FAERS Safety Report 8203838-8 (Version None)
Quarter: 2012Q1

REPORT INFORMATION
  Report Type: 
  Country: None (occurrence: None)
  Receive Date: 20120308
  Receipt Date: 20120228
  Transmission Date: 20120608
  Serious: Yes (Hospitalization)
  Sender: FDA-Public Use
  Company Number: 2012SP011226

PATIENT
  Age: 43 Year
  Sex: Male

DRUGS (5)
  1. DESLORATADINE [Suspect]
     Indication: PRODUCT USED FOR UNKNOWN INDICATION
     Dosage: UNK, PO
     Route: 048
     Dates: start: 20120109, end: 20120109
  2. NIFLURIL (NIFLUMIC ACID) [Suspect]
     Indication: BACK PAIN
     Dosage: 250 MG, UNK, PO
     Route: 048
     Dates: start: 20120109, end: 20120109
  3. NIFLUGEL (NIGLUMIC ACID) [Suspect]
     Indication: BACK PAIN
     Dosage: UNK, TOP
     Route: 061
     Dates: end: 20120109
  4. ACETAMINOPHEN [Concomitant]
  5. CODEINE PHOSPHATE AND ACETAMINOPHEN [Suspect]
     Indication: BACK PAIN
     Dosage: UNK, PO
     Route: 048
     Dates: start: 20120109, end: 20120109

REACTIONS (3)
  - URTICARIA [None]
  - ANGIOEDEMA [None]
  - INADEQUATE ANALGESIA [None]
